FAERS Safety Report 13788638 (Version 1)
Quarter: 2017Q3

REPORT INFORMATION
  Report Type: Spontaneous
  Country: US (occurrence: US)
  Receive Date: 20170725
  Receipt Date: 20170725
  Transmission Date: 20171127
  Serious: No
  Sender: FDA-Public Use
  Company Number: US-UNITED THERAPEUTICS-UNT-2017-004655

PATIENT
  Sex: Male

DRUGS (5)
  1. REMODULIN [Suspect]
     Active Substance: TREPROSTINIL
     Dosage: UNK
     Route: 041
     Dates: start: 20170207
  2. REMODULIN [Suspect]
     Active Substance: TREPROSTINIL
     Dosage: UNK
     Route: 041
     Dates: start: 20170411
  3. REMODULIN [Suspect]
     Active Substance: TREPROSTINIL
     Dosage: 0.012 ?G/KG, CONTINUING
     Route: 041
     Dates: start: 20170220
  4. REMODULIN [Suspect]
     Active Substance: TREPROSTINIL
     Indication: PULMONARY ARTERIAL HYPERTENSION
     Dosage: 0.01325 ?G/KG, CONTINUING
     Route: 041
     Dates: start: 20170124
  5. REMODULIN [Suspect]
     Active Substance: TREPROSTINIL
     Dosage: 0.0145 ?G/KG, CONTINUING
     Route: 041

REACTIONS (13)
  - Peripheral swelling [Unknown]
  - Fatigue [Unknown]
  - Nausea [Not Recovered/Not Resolved]
  - Confusional state [Unknown]
  - Decreased appetite [Unknown]
  - Irritability [Unknown]
  - Anger [Unknown]
  - Vomiting [Unknown]
  - General physical health deterioration [Unknown]
  - Weight decreased [Not Recovered/Not Resolved]
  - Joint swelling [Unknown]
  - Speech disorder [Unknown]
  - Dysphagia [Unknown]

NARRATIVE: CASE EVENT DATE: 2017
